FAERS Safety Report 5317709-8 (Version None)
Quarter: 2007Q2

REPORT INFORMATION
  Report Type: 
  Country: None (occurrence: None)
  Receive Date: 20070507
  Receipt Date: 20070424
  Transmission Date: 20071010
  Serious: Yes (Death, Hospitalization)
  Sender: FDA-Public Use
  Company Number: NSADSS2002014842

PATIENT
  Age: 39 Year
  Sex: Female

DRUGS (19)
  1. REMICADE [Suspect]
     Route: 041
     Dates: start: 20001205
  2. REMICADE [Suspect]
     Route: 041
     Dates: start: 20001205
  3. REMICADE [Suspect]
     Route: 041
     Dates: start: 20001205
  4. REMICADE [Suspect]
     Indication: RHEUMATOID ARTHRITIS
     Route: 041
     Dates: start: 20001205
  5. METHOTREXATE [Suspect]
     Indication: DRUG USE FOR UNKNOWN INDICATION
     Route: 065
     Dates: start: 19991001
  6. IMUPRIN [Suspect]
     Indication: RHEUMATOID ARTHRITIS
     Route: 048
     Dates: start: 20010601
  7. PREDNISOLONE [Concomitant]
     Indication: RHEUMATOID ARTHRITIS
     Dates: start: 20010601
  8. FOLVITE [Concomitant]
  9. FOLVITE [Concomitant]
  10. LOSEC [Concomitant]
  11. CALCICHEW-D3 [Concomitant]
  12. DIFORMIN RETARD [Concomitant]
  13. DISPERIN [Concomitant]
  14. EMCONCOR [Concomitant]
  15. LIPITOR [Concomitant]
  16. PARACETAMOL [Concomitant]
  17. BURANA [Concomitant]
     Route: 048
  18. PRIMASPAN [Concomitant]
     Route: 048
  19. OBSIDAN [Concomitant]
     Route: 048

REACTIONS (12)
  - C-REACTIVE PROTEIN [None]
  - CHEST PAIN [None]
  - ERYTHEMA [None]
  - IMMUNOSUPPRESSION [None]
  - INFUSION RELATED REACTION [None]
  - PERICARDITIS [None]
  - PNEUMONIA [None]
  - RASH [None]
  - SEPTIC SHOCK [None]
  - THROAT TIGHTNESS [None]
  - TONSILLITIS [None]
  - TREMOR [None]
